FAERS Safety Report 21161229 (Version 1)
Quarter: 2022Q3

REPORT INFORMATION
  Report Type: Spontaneous
  Country: JP (occurrence: JP)
  Receive Date: 20220802
  Receipt Date: 20220802
  Transmission Date: 20221027
  Serious: Yes (Other)
  Sender: FDA-Public Use
  Company Number: JP-GUERBET-JP-20220103

PATIENT
  Age: 58 Year
  Sex: Male

DRUGS (2)
  1. LIPIODOL [Suspect]
     Active Substance: ETHIODIZED OIL
     Indication: Therapeutic embolisation
     Route: 065
  2. ENBUCRILATE [Concomitant]
     Active Substance: ENBUCRILATE
     Indication: Therapeutic embolisation
     Route: 065

REACTIONS (2)
  - Haematochezia [Recovered/Resolved]
  - Product use in unapproved indication [Recovered/Resolved]
